FAERS Safety Report 7229337-8 (Version None)
Quarter: 2011Q1

REPORT INFORMATION
  Report Type: 
  Country: None (occurrence: None)
  Receive Date: 20110117
  Receipt Date: 20110110
  Transmission Date: 20110831
  Serious: Yes (Hospitalization, Other)
  Sender: FDA-Public Use
  Company Number: BR-SANOFI-AVENTIS-2011SA002054

PATIENT
  Age: 0 Day
  Sex: Male

DRUGS (1)
  1. LANTUS [Suspect]
     Route: 064
     Dates: end: 20090101

REACTIONS (3)
  - HYPOGLYCAEMIA [None]
  - DRUG EXPOSURE DURING PREGNANCY [None]
  - RESPIRATORY DISTRESS [None]
